FAERS Safety Report 9487068 (Version 1)
Quarter: 2013Q3

REPORT INFORMATION
  Report Type: Spontaneous
  Country: CZ (occurrence: CZ)
  Receive Date: 20130829
  Receipt Date: 20130829
  Transmission Date: 20140515
  Serious: Yes (Hospitalization)
  Sender: FDA-Public Use
  Company Number: CZ-B.I. PHARMACEUTICALS,INC./RIDGEFIELD-2013-BI-26338GD

PATIENT
  Age: 58 Year
  Sex: Male

DRUGS (9)
  1. MICARDIS [Suspect]
     Dosage: 80 MG
     Route: 048
  2. BETALOC [Suspect]
     Dosage: 200 MG
     Route: 048
  3. PROPANORM [Suspect]
     Indication: ARRHYTHMIA
     Dosage: 600 MG
     Route: 048
  4. ZOREM [Suspect]
     Dosage: 7.5 MG
     Route: 048
  5. TENAXUM [Suspect]
     Dosage: 1 MG
     Route: 048
  6. SIOFOR [Suspect]
     Indication: TYPE 2 DIABETES MELLITUS
     Dosage: 1700 MG
     Route: 048
  7. WARFARIN [Suspect]
     Indication: ANTICOAGULANT THERAPY
     Dosage: 10 MG
     Route: 048
  8. FRAXIPARINE [Suspect]
     Dosage: 1 ML
     Route: 058
  9. ANTIINFLAMMATORY AGENTS, NON-STEROIDS [Suspect]
     Indication: BACK PAIN

REACTIONS (6)
  - Palpitations [Unknown]
  - Dysuria [Unknown]
  - Cystitis [Unknown]
  - Normochromic normocytic anaemia [Unknown]
  - Iron deficiency anaemia [Unknown]
  - Urinary tract infection [Unknown]
